FAERS Safety Report 5334758-4 (Version None)
Quarter: 2007Q2

REPORT INFORMATION
  Report Type: 
  Country: None (occurrence: None)
  Receive Date: 20070308
  Receipt Date: 20070105
  Transmission Date: 20071010
  Serious: No
  Sender: FDA-Public Use
  Company Number: 2006-BP-10071BP

PATIENT
  Age: 54 Year
  Sex: Male

DRUGS (7)
  1. SPIRIVA [Suspect]
     Indication: CHRONIC OBSTRUCTIVE PULMONARY DISEASE
     Dosage: 18 MCG (18 MCG, 1 IN 1 D), IH
     Route: 055
  2. SPIRIVA [Suspect]
  3. ZYPREXA [Concomitant]
  4. BLOOD PRESSURE MEDICINE (ANTIHYPERTENSIVES) [Concomitant]
  5. ASPIRIN [Concomitant]
  6. PAIN RELIEVERS (ANALGESICS) [Concomitant]
  7. NERVE INFLAMATION MEDICATION (ALL OTHER THERAPEUTIC PRODUCTS) [Concomitant]

REACTIONS (1)
  - CHEST DISCOMFORT [None]
